FAERS Safety Report 14355503 (Version 2)
Quarter: 2025Q3

REPORT INFORMATION
  Report Type: Spontaneous
  Country: US (occurrence: US)
  Receive Date: 20180105
  Receipt Date: 20250822
  Transmission Date: 20251021
  Serious: No
  Sender: BIOGEN
  Company Number: US-BIOGEN-2018BI00504520

PATIENT
  Sex: Female

DRUGS (12)
  1. TYSABRI [Suspect]
     Active Substance: NATALIZUMAB
     Indication: Secondary progressive multiple sclerosis
     Route: 050
  2. KEPPRA [Concomitant]
     Active Substance: LEVETIRACETAM
     Route: 050
  3. LACOSAMIDE [Concomitant]
     Active Substance: LACOSAMIDE
     Route: 050
  4. BACLOFEN [Concomitant]
     Active Substance: BACLOFEN
     Route: 050
  5. ASPIRIN [Concomitant]
     Active Substance: ASPIRIN
     Route: 050
  6. TRINTELLIX [Concomitant]
     Active Substance: VORTIOXETINE HYDROBROMIDE
     Route: 050
  7. VALACYCLOVIR [Concomitant]
     Active Substance: VALACYCLOVIR HYDROCHLORIDE
     Route: 050
  8. HIPREX [Concomitant]
     Active Substance: METHENAMINE HIPPURATE
     Route: 050
  9. COLACE [Concomitant]
     Active Substance: DOCUSATE SODIUM
     Route: 050
  10. NAYZILAM [Concomitant]
     Active Substance: MIDAZOLAM
     Route: 050
  11. RITUXAN [Concomitant]
     Active Substance: RITUXIMAB
     Route: 050
  12. OCREVUS [Concomitant]
     Active Substance: OCRELIZUMAB
     Route: 050

REACTIONS (1)
  - Drug ineffective [Unknown]
